FAERS Safety Report 5122330-0 (Version None)
Quarter: 2006Q4

REPORT INFORMATION
  Report Type: 
  Country: None (occurrence: None)
  Receive Date: 20061003
  Receipt Date: 20060929
  Transmission Date: 20070319
  Serious: Yes (Hospitalization)
  Sender: FDA-Public Use
  Company Number: 222436

PATIENT
  Age: 72 Year
  Sex: Male

DRUGS (3)
  1. XOLAIR [Suspect]
     Indication: ASTHMA
     Dosage: 150 MG
     Dates: start: 20050901
  2. ANTIHYPERTENSIVE MEDICATION NOS (ANTIHYPERTENSIVE NOS) [Concomitant]
  3. HYPERLIPIDEMIA MEDICATIONS [Concomitant]

REACTIONS (1)
  - ANGINA PECTORIS [None]
